FAERS Safety Report 8103052-0 (Version None)
Quarter: 2012Q1

REPORT INFORMATION
  Report Type: 
  Country: None (occurrence: None)
  Receive Date: 20120201
  Receipt Date: 20120125
  Transmission Date: 20120608
  Serious: Yes (Hospitalization)
  Sender: FDA-Public Use
  Company Number: US-BAYER-2011-075689

PATIENT
  Sex: Female
  Weight: 76 kg

DRUGS (8)
  1. PANTOPRAZOLE [Concomitant]
     Dosage: 40 MG, UNK
     Route: 048
     Dates: start: 20090101
  2. METHADONE HCL [Concomitant]
     Dosage: 10 MG, UNK
     Route: 048
     Dates: start: 20090201, end: 20091101
  3. CHANTIX [Concomitant]
     Dosage: UNK
     Dates: start: 20090801
  4. YAZ [Suspect]
     Dosage: UNK
     Route: 048
     Dates: start: 20090101
  5. PHENTERMINE [Concomitant]
     Dosage: 37.5 MG, UNK
     Route: 048
     Dates: start: 20090401, end: 20090901
  6. LEVOTHYROXINE SODIUM [Concomitant]
     Dosage: 50 MCG/24HR, UNK
     Dates: start: 20090701
  7. KAPIDEX [Concomitant]
     Dosage: 60 MG, UNK
     Route: 048
     Dates: start: 20090601, end: 20090701
  8. CELEXA [Concomitant]
     Indication: ANXIETY

REACTIONS (1)
  - GALLBLADDER INJURY [None]
